FAERS Safety Report 13449804 (Version 1)
Quarter: 2017Q2

REPORT INFORMATION
  Report Type: Spontaneous
  Country: US (occurrence: US)
  Receive Date: 20170417
  Receipt Date: 20170417
  Transmission Date: 20170830
  Serious: Yes (Hospitalization)
  Sender: FDA-Public Use
  Company Number: US-BION-20160688

PATIENT
  Age: 73 Year
  Sex: Male
  Weight: 76.2 kg

DRUGS (4)
  1. POTASSIUM [Concomitant]
     Active Substance: POTASSIUM
  2. ALEVE [Suspect]
     Active Substance: NAPROXEN SODIUM
     Indication: SCROTAL INFLAMMATION
     Dosage: 2 DF EVERY 8 HOURS
     Route: 048
  3. BUMETANIDE. [Concomitant]
     Active Substance: BUMETANIDE
  4. STEROID SHOTS [Concomitant]
     Active Substance: UNSPECIFIED INGREDIENT
     Dosage: EVERY 3 WEEKS.

REACTIONS (4)
  - Off label use [Recovered/Resolved]
  - Gastric haemorrhage [Recovered/Resolved]
  - Haematochezia [Recovered/Resolved]
  - Prescribed overdose [Recovered/Resolved]
